FAERS Safety Report 24085748 (Version 4)
Quarter: 2025Q2

REPORT INFORMATION
  Report Type: Spontaneous
  Country: US (occurrence: US)
  Receive Date: 20240712
  Receipt Date: 20250402
  Transmission Date: 20250716
  Serious: No
  Sender: PFIZER
  Company Number: US-PFIZER INC-202400212452

PATIENT
  Age: 27 Year
  Sex: Female

DRUGS (2)
  1. LITFULO [Suspect]
     Active Substance: RITLECITINIB TOSYLATE
     Indication: Alopecia areata
     Dosage: 50 MG, 1X/DAY (TAKE 1 CAPSULE ORALLY ONCE A DAY)
     Route: 048
     Dates: start: 20240726
  2. OLUMIANT [Concomitant]
     Active Substance: BARICITINIB

REACTIONS (5)
  - Therapeutic product effect incomplete [Unknown]
  - Product dose omission in error [Unknown]
  - Fatigue [Unknown]
  - Product dose omission issue [Unknown]
  - Infection [Unknown]
